FAERS Safety Report 21640222 (Version 2)
Quarter: 2022Q4

REPORT INFORMATION
  Report Type: Spontaneous
  Country: FR (occurrence: FR)
  Receive Date: 20221124
  Receipt Date: 20221129
  Transmission Date: 20230112
  Serious: No
  Sender: FDA-Public Use
  Company Number: None

PATIENT
  Age: 63 Year
  Sex: Male

DRUGS (4)
  1. FIDAXOMICIN [Suspect]
     Active Substance: FIDAXOMICIN
     Indication: Acral lentiginous melanoma
     Dosage: UNK
     Route: 048
     Dates: start: 20220903, end: 20220906
  2. NIVOLUMAB [Suspect]
     Active Substance: NIVOLUMAB
     Indication: Acral lentiginous melanoma
     Dosage: UNK
     Route: 048
     Dates: start: 20220627
  3. IPILIMUMAB [Suspect]
     Active Substance: IPILIMUMAB
     Indication: Acral lentiginous melanoma
     Dosage: 5 MILLIGRAM PER MILLILITER
     Route: 041
     Dates: start: 20220627
  4. PREDNISONE [Concomitant]
     Active Substance: PREDNISONE
     Indication: Product used for unknown indication
     Dosage: LONG-TERM TREATMENT
     Route: 065

REACTIONS (2)
  - Hepatic cytolysis [Recovering/Resolving]
  - Off label use [Unknown]

NARRATIVE: CASE EVENT DATE: 20220903
